FAERS Safety Report 7087301-6 (Version None)
Quarter: 2010Q4

REPORT INFORMATION
  Report Type: 
  Country: None (occurrence: None)
  Receive Date: 20101107
  Receipt Date: 20100927
  Transmission Date: 20110411
  Serious: Yes (Hospitalization, Other)
  Sender: FDA-Public Use
  Company Number: PHHY2010JP65930

PATIENT
  Sex: Female

DRUGS (10)
  1. DIOVAN [Suspect]
     Indication: HYPERTENSION
     Dosage: 80 MG DAILY
     Route: 048
     Dates: start: 20090616
  2. NORVASC [Concomitant]
     Dosage: 5 MG
     Route: 048
  3. FLUITRAN [Concomitant]
     Dosage: 1 MG
     Route: 048
     Dates: start: 20091028
  4. DOXAZOSIN MESYLATE [Concomitant]
     Dosage: 2 MG
     Route: 048
     Dates: start: 20091110
  5. GASRICK D [Concomitant]
     Dosage: UNK
     Route: 048
     Dates: start: 20090616
  6. PURSENNID [Concomitant]
     Dosage: 12 MG
     Route: 048
     Dates: start: 20090616
  7. RHEUMATREX [Concomitant]
     Dosage: 4 DF
     Route: 048
     Dates: start: 20090616
  8. LOXONIN [Concomitant]
     Dosage: 180 MG
     Route: 048
     Dates: start: 20080401
  9. MYSLEE [Concomitant]
     Dosage: 5 MG
     Route: 048
     Dates: start: 20090714
  10. MYSLEE [Concomitant]
     Dosage: 10 MG

REACTIONS (3)
  - FALL [None]
  - FEMORAL NECK FRACTURE [None]
  - SURGERY [None]
